FAERS Safety Report 23187859 (Version 1)
Quarter: 2023Q4

REPORT INFORMATION
  Report Type: Spontaneous
  Country: US (occurrence: None)
  Receive Date: 20231115
  Receipt Date: 20231115
  Transmission Date: 20240110
  Serious: No
  Sender: FDA-Public Use
  Company Number: None

PATIENT
  Age: 69 Year
  Sex: Male

DRUGS (2)
  1. JAKAFI [Suspect]
     Active Substance: RUXOLITINIB
     Dosage: FREQUENCY : TWICE A DAY;?
     Route: 048
     Dates: start: 20210615
  2. JAKAFI [Concomitant]
     Active Substance: RUXOLITINIB
     Dates: start: 20210615

REACTIONS (2)
  - Incorrect dose administered [None]
  - Intentional product use issue [None]

NARRATIVE: CASE EVENT DATE: 20231115
